FAERS Safety Report 24700685 (Version 7)
Quarter: 2025Q2

REPORT INFORMATION
  Report Type: Spontaneous
  Country: DE (occurrence: DE)
  Receive Date: 20241205
  Receipt Date: 20250515
  Transmission Date: 20250717
  Serious: Yes (Death, Other)
  Sender: ALEXION PHARMACEUTICALS
  Company Number: DE-009507513-2412DEU000432

PATIENT
  Age: 59 Year

DRUGS (13)
  1. LYNPARZA [Suspect]
     Active Substance: OLAPARIB
     Indication: Breast cancer
  2. LYNPARZA [Suspect]
     Active Substance: OLAPARIB
     Indication: Breast cancer
  3. LYNPARZA [Suspect]
     Active Substance: OLAPARIB
  4. LYNPARZA [Suspect]
     Active Substance: OLAPARIB
  5. LYNPARZA [Suspect]
     Active Substance: OLAPARIB
  6. CASPOFUNGIN ACETATE [Suspect]
     Active Substance: CASPOFUNGIN ACETATE
     Indication: Pneumonia fungal
     Route: 065
  7. CASPOFUNGIN ACETATE [Suspect]
     Active Substance: CASPOFUNGIN ACETATE
     Indication: Pneumonia fungal
     Route: 065
  8. CASPOFUNGIN ACETATE [Suspect]
     Active Substance: CASPOFUNGIN ACETATE
  9. CASPOFUNGIN ACETATE [Suspect]
     Active Substance: CASPOFUNGIN ACETATE
  10. CASPOFUNGIN ACETATE [Suspect]
     Active Substance: CASPOFUNGIN ACETATE
  11. CASPOFUNGIN ACETATE [Suspect]
     Active Substance: CASPOFUNGIN ACETATE
  12. CASPOFUNGIN ACETATE [Suspect]
     Active Substance: CASPOFUNGIN ACETATE
  13. CASPOFUNGIN ACETATE [Suspect]
     Active Substance: CASPOFUNGIN ACETATE

REACTIONS (4)
  - Malignant neoplasm progression [Fatal]
  - Pneumonia fungal [Fatal]
  - Myelodysplastic syndrome [Fatal]
  - Fatigue [Unknown]
